FAERS Safety Report 25102934 (Version 2)
Quarter: 2025Q2

REPORT INFORMATION
  Report Type: Spontaneous
  Country: US (occurrence: US)
  Receive Date: 20250321
  Receipt Date: 20250422
  Transmission Date: 20250716
  Serious: Yes (Other)
  Sender: ABBVIE
  Company Number: US-ABBVIE-6184874

PATIENT
  Age: 72 Year
  Sex: Male

DRUGS (2)
  1. DUOPA [Suspect]
     Active Substance: CARBIDOPA\LEVODOPA
     Indication: Product used for unknown indication
     Route: 050
  2. DUOPA [Suspect]
     Active Substance: CARBIDOPA\LEVODOPA

REACTIONS (7)
  - Intestinal obstruction [Unknown]
  - Haematemesis [Unknown]
  - Device loosening [Not Recovered/Not Resolved]
  - Device alarm issue [Unknown]
  - Device occlusion [Unknown]
  - Gastrointestinal injury [Unknown]
  - Throat irritation [Unknown]

NARRATIVE: CASE EVENT DATE: 20250101
